FAERS Safety Report 9364153 (Version 1)
Quarter: 2013Q2

REPORT INFORMATION
  Report Type: Spontaneous
  Country: US (occurrence: None)
  Receive Date: 20130619
  Receipt Date: 20130619
  Transmission Date: 20140414
  Serious: Yes (Other)
  Sender: FDA-Public Use
  Company Number: 2013AP006020

PATIENT
  Age: 53 Year
  Sex: Female

DRUGS (4)
  1. OXCARBAZEPINE [Suspect]
     Indication: COMPLEX PARTIAL SEIZURES
  2. LAMOTRIGINE [Suspect]
     Indication: COMPLEX PARTIAL SEIZURES
  3. PREGABALIN [Suspect]
     Indication: COMPLEX PARTIAL SEIZURES
  4. CARBAMAZEPINE [Concomitant]

REACTIONS (17)
  - Toxicity to various agents [None]
  - Complex partial seizures [None]
  - Atonic seizures [None]
  - Grand mal convulsion [None]
  - Cognitive disorder [None]
  - Ataxia [None]
  - Balance disorder [None]
  - Nausea [None]
  - Vomiting [None]
  - Aphasia [None]
  - Depressed level of consciousness [None]
  - Urinary incontinence [None]
  - Faecal incontinence [None]
  - Fall [None]
  - Subdural haematoma [None]
  - Head injury [None]
  - Brain contusion [None]
